FAERS Safety Report 7907811-6 (Version None)
Quarter: 2011Q4

REPORT INFORMATION
  Report Type: 
  Country: None (occurrence: None)
  Receive Date: 20111110
  Receipt Date: 20111026
  Transmission Date: 20120403
  Serious: Yes (Other)
  Sender: FDA-Public Use
  Company Number: US-PFIZER INC-2011251998

PATIENT
  Sex: Female
  Weight: 61.68 kg

DRUGS (12)
  1. AMITIZA [Concomitant]
     Dosage: 8MCG
  2. CLONIDINE HYDROCHLORIDE [Suspect]
     Dosage: 10 MG, 2X/DAY
     Route: 065
  3. PROZAC [Concomitant]
  4. FTY 720 [Suspect]
     Dosage: 0.5 MG, QD
     Route: 048
  5. CARDIZEM [Suspect]
  6. DIAZEPAM [Concomitant]
  7. LISINOPRIL [Suspect]
     Dosage: 10 MG, 2X/DAY
     Route: 065
  8. CLONIDINE HYDROCHLORIDE [Suspect]
     Dosage: 0.1 MG, UNK
     Route: 048
  9. LOPRESSOR [Concomitant]
     Dosage: 50 MG, UNK
  10. LEVOTHYROXINE SODIUM [Suspect]
     Dosage: 300 MG, 2X/DAY
     Route: 048
  11. DYAZIDE [Concomitant]
  12. VITAMIN D [Concomitant]

REACTIONS (3)
  - HYPERTENSIVE CRISIS [None]
  - ATRIOVENTRICULAR BLOCK [None]
  - BLOOD PRESSURE INCREASED [None]
